FAERS Safety Report 8819069 (Version 1)
Quarter: 2012Q4

REPORT INFORMATION
  Report Type: Report from Study
  Country: CA (occurrence: CA)
  Receive Date: 20121001
  Receipt Date: 20121001
  Transmission Date: 20130627
  Serious: No
  Sender: FDA-Public Use
  Company Number: CA-JNJFOC-20120911287

PATIENT
  Age: 49 Year
  Sex: Male
  Weight: 32.66 kg

DRUGS (1)
  1. REMICADE [Suspect]
     Indication: COLITIS ULCERATIVE
     Dosage: 52 weeks
     Route: 042
     Dates: start: 20090819

REACTIONS (1)
  - Herpes zoster [Unknown]
